FAERS Safety Report 14970323 (Version 1)
Quarter: 2018Q2

REPORT INFORMATION
  Report Type: Spontaneous
  Country: US (occurrence: US)
  Receive Date: 20180604
  Receipt Date: 20180604
  Transmission Date: 20180711
  Serious: No
  Sender: FDA-Public Use
  Company Number: US-ALLERGAN-1767240US

PATIENT
  Age: 40 Year
  Sex: Female

DRUGS (1)
  1. KYBELLA [Suspect]
     Active Substance: DEOXYCHOLIC ACID
     Indication: PRODUCT USED FOR UNKNOWN INDICATION
     Dosage: 4 ML, SINGLE, 2 VIALS
     Route: 058
     Dates: start: 20171114, end: 20171114

REACTIONS (2)
  - Facial paresis [Unknown]
  - Nerve injury [Unknown]

NARRATIVE: CASE EVENT DATE: 20171114
